FAERS Safety Report 16154728 (Version 2)
Quarter: 2019Q2

REPORT INFORMATION
  Report Type: Spontaneous
  Country: FR (occurrence: FR)
  Receive Date: 20190403
  Receipt Date: 20190410
  Transmission Date: 20190711
  Serious: Yes (Hospitalization)
  Sender: FDA-Public Use
  Company Number: FR-EISAI MEDICAL RESEARCH-EC-2019-054100

PATIENT
  Age: 79 Year
  Sex: Female

DRUGS (9)
  1. PARIET [Suspect]
     Active Substance: RABEPRAZOLE SODIUM
     Indication: PRODUCT USED FOR UNKNOWN INDICATION
     Route: 048
     Dates: end: 20121114
  2. GAVISCON (ALGINIC ACID\ALUMINUM HYDROXIDE\MAGNESIUM TRISILICATE\SODIUM ALGINATE\SODIUM BICARBONATE) [Concomitant]
     Active Substance: ALGINIC ACID\ALUMINUM HYDROXIDE\MAGNESIUM TRISILICATE\SODIUM ALGINATE\SODIUM BICARBONATE
     Indication: PRODUCT USED FOR UNKNOWN INDICATION
     Dosage: DOSAGE AND FREQUENCY UNKNOWN.
  3. ELUDRIL (CHLORHEXIDINE GLUCONATE\TETRACAINE HYDROCHLORIDE) [Suspect]
     Active Substance: CHLORHEXIDINE GLUCONATE\TETRACAINE HYDROCHLORIDE
     Indication: ORAL FUNGAL INFECTION
     Route: 002
     Dates: start: 20121113, end: 20121115
  4. TRIFLUCAN [Suspect]
     Active Substance: FLUCONAZOLE
     Indication: ORAL FUNGAL INFECTION
     Route: 048
     Dates: start: 20121113, end: 20121121
  5. AMOXICILLIN CLAVULANIC ACID [Suspect]
     Active Substance: AMOXICILLIN\CLAVULANIC ACID
     Indication: LUNG DISORDER
     Route: 048
     Dates: start: 20121110, end: 20121117
  6. FUNGIZONE [Suspect]
     Active Substance: AMPHOTERICIN B
     Indication: ORAL FUNGAL INFECTION
     Route: 048
     Dates: start: 20121111, end: 20121115
  7. BROMAZEPAM BIOGARAN [Suspect]
     Active Substance: BROMAZEPAM
     Indication: DEPRESSION
     Route: 048
     Dates: end: 20121122
  8. BISOCE [Suspect]
     Active Substance: BISOPROLOL
     Indication: HYPERTENSION
     Dosage: DOSAGE NOT PROVIDED.
     Route: 048
     Dates: end: 20121121
  9. IXEL [Concomitant]
     Active Substance: MILNACIPRAN HYDROCHLORIDE
     Indication: PRODUCT USED FOR UNKNOWN INDICATION
     Dosage: DOSAGE AND FREQUENCY UNKNOWN.

REACTIONS (3)
  - Urinary retention [Recovered/Resolved]
  - Hallucination [Recovered/Resolved]
  - Confusional state [Recovered/Resolved]

NARRATIVE: CASE EVENT DATE: 20121114
